FAERS Safety Report 9929128 (Version 1)
Quarter: 2014Q1

REPORT INFORMATION
  Report Type: Report from Study
  Country: US (occurrence: US)
  Receive Date: 20140227
  Receipt Date: 20140227
  Transmission Date: 20141002
  Serious: Yes (Death)
  Sender: FDA-Public Use
  Company Number: US-ROCHE-1312499

PATIENT
  Age: 42 Year
  Sex: Male
  Weight: 92.8 kg

DRUGS (15)
  1. AVASTIN [Suspect]
     Indication: BRAIN NEOPLASM MALIGNANT
     Route: 065
     Dates: start: 20130115
  2. KYTRIL [Suspect]
     Indication: BRAIN NEOPLASM MALIGNANT
     Route: 065
     Dates: start: 20130212
  3. CARBOPLATIN [Concomitant]
     Route: 065
     Dates: start: 20130212
  4. DEXAMETHASONE SODIUM PHOSPHATE [Concomitant]
     Route: 065
     Dates: start: 20130212
  5. FOLIC ACID [Concomitant]
     Route: 065
  6. PHENYTOIN SODIUM, EXTENDED [Concomitant]
     Route: 048
  7. RANITIDINE HCL [Concomitant]
     Route: 048
  8. XANAX [Concomitant]
     Dosage: PRN
     Route: 048
  9. VALTREX [Concomitant]
     Indication: RASH
     Dosage: FOR ONE WEEK
     Route: 065
  10. VALTREX [Concomitant]
     Dosage: FOR MAINTENANCE
     Route: 065
  11. LASIX [Concomitant]
     Route: 048
     Dates: start: 20130301
  12. DEPAKOTE ER [Concomitant]
     Route: 048
     Dates: start: 20130301
  13. DEPAKOTE ER [Concomitant]
     Route: 048
  14. ATROPINE [Concomitant]
     Dosage: 1-2 DROPS EVERY 6 HRS PRN
     Route: 065
  15. DIFLUCAN [Concomitant]
     Indication: ORAL CANDIDIASIS

REACTIONS (23)
  - Death [Fatal]
  - Dysgraphia [Unknown]
  - Muscular weakness [Unknown]
  - Insomnia [Unknown]
  - Local swelling [Unknown]
  - Rash erythematous [Recovering/Resolving]
  - Herpes zoster [Recovering/Resolving]
  - Feeling jittery [Unknown]
  - Frustration [Unknown]
  - Pain in extremity [Unknown]
  - Back pain [Unknown]
  - Hemiplegia [Unknown]
  - Muscle contracture [Unknown]
  - Productive cough [Unknown]
  - Sputum abnormal [Unknown]
  - Contusion [Unknown]
  - Fall [Unknown]
  - Decreased appetite [Unknown]
  - Oral candidiasis [Unknown]
  - Dementia [Unknown]
  - Weight decreased [Unknown]
  - Impaired reasoning [Unknown]
  - Condition aggravated [Unknown]
